FAERS Safety Report 10398950 (Version 2)
Quarter: 2014Q4

REPORT INFORMATION
  Report Type: Report from Study
  Country: KR (occurrence: KR)
  Receive Date: 20140821
  Receipt Date: 20141024
  Transmission Date: 20150528
  Serious: No
  Sender: FDA-Public Use
  Company Number: PHHY2014KR103871

PATIENT
  Age: 60 Year
  Sex: Male

DRUGS (5)
  1. ULCERLMIN [Concomitant]
     Active Substance: SUCRALFATE
     Indication: DYSPEPSIA
     Dosage: 45 ML, UNK
     Route: 048
     Dates: start: 20130930
  2. CURAN [Concomitant]
     Indication: DYSPEPSIA
     Dosage: 300 MG, UNK
     Route: 048
     Dates: start: 20130930
  3. AMN107 [Suspect]
     Active Substance: NILOTINIB
     Indication: CHRONIC MYELOID LEUKAEMIA
     Dosage: 600 MG, PER DAY
     Route: 048
     Dates: start: 20130805
  4. ULTRACET [Concomitant]
     Active Substance: ACETAMINOPHEN\TRAMADOL HYDROCHLORIDE
     Indication: MYALGIA
     Dosage: 1 DF, UNK
     Route: 048
     Dates: start: 20130930, end: 20131015
  5. VAXIGRIP [Concomitant]
     Active Substance: INFLUENZA VIRUS VACCINE
     Indication: INFLUENZA IMMUNISATION
     Dosage: 0.5 ML, UNK
     Route: 030
     Dates: start: 20131028, end: 20131028

REACTIONS (1)
  - Upper respiratory tract infection [Recovered/Resolved]

NARRATIVE: CASE EVENT DATE: 20131109
